FAERS Safety Report 8042971-0 (Version None)
Quarter: 2012Q1

REPORT INFORMATION
  Report Type: 
  Country: None (occurrence: None)
  Receive Date: 20120112
  Receipt Date: 20120104
  Transmission Date: 20120608
  Serious: Yes (Other)
  Sender: FDA-Public Use
  Company Number: PHHY2012BR001216

PATIENT
  Age: 89 Year
  Sex: Male

DRUGS (1)
  1. EXELON [Suspect]
     Indication: MEMORY IMPAIRMENT
     Dosage: 2 DF, DAILY
     Route: 048
     Dates: start: 20101001, end: 20111101

REACTIONS (2)
  - TREMOR [None]
  - CEREBRAL ISCHAEMIA [None]
